FAERS Safety Report 7463976-4 (Version None)
Quarter: 2011Q2

REPORT INFORMATION
  Report Type: 
  Country: None (occurrence: None)
  Receive Date: 20110506
  Receipt Date: 20110426
  Transmission Date: 20111010
  Serious: Yes (Death)
  Sender: FDA-Public Use
  Company Number: RU-CELGENEUS-251-C5013-08111514

PATIENT
  Sex: Male
  Weight: 72 kg

DRUGS (7)
  1. MELPHALAN HYDROCHLORIDE [Suspect]
     Indication: MULTIPLE MYELOMA
     Dosage: .18 MILLIGRAM/KILOGRAM
     Route: 065
     Dates: start: 20070823, end: 20080307
  2. LENALIDOMIDE [Suspect]
     Dosage: 20 MILLIGRAM
     Route: 048
     Dates: start: 20081105
  3. LENALIDOMIDE [Suspect]
     Dosage: 10 MILLIGRAM
     Route: 048
     Dates: start: 20070823, end: 20080508
  4. MELPHALAN HYDROCHLORIDE [Suspect]
     Dosage: .14 MILLIGRAM/KILOGRAM
     Route: 065
     Dates: start: 20080508, end: 20080511
  5. LENALIDOMIDE [Suspect]
     Indication: MULTIPLE MYELOMA
     Dosage: 7.5 MILLIGRAM
     Route: 048
     Dates: start: 20080508, end: 20080825
  6. PREDNISONE [Suspect]
     Indication: MULTIPLE MYELOMA
     Dosage: 2 MILLIGRAM/KILOGRAM
     Route: 065
     Dates: start: 20070823, end: 20080511
  7. LENALIDOMIDE [Suspect]
     Indication: MULTIPLE MYELOMA
     Dosage: 25 MILLIGRAM
     Route: 048
     Dates: start: 20080909, end: 20080920

REACTIONS (1)
  - DEATH [None]
